FAERS Safety Report 16291532 (Version 1)
Quarter: 2019Q2

REPORT INFORMATION
  Report Type: Spontaneous
  Country: US (occurrence: US)
  Receive Date: 20190509
  Receipt Date: 20190509
  Transmission Date: 20190711
  Serious: No
  Sender: FDA-Public Use
  Company Number: US-SHIRE-US201915209

PATIENT
  Sex: Male

DRUGS (1)
  1. XIIDRA [Suspect]
     Active Substance: LIFITEGRAST
     Indication: DRY EYE
     Dosage: 2 GTT DROPS
     Route: 047
     Dates: start: 201802

REACTIONS (2)
  - Instillation site reaction [Not Recovered/Not Resolved]
  - Eyelid cyst [Not Recovered/Not Resolved]
